FAERS Safety Report 21905859 (Version 4)
Quarter: 2023Q2

REPORT INFORMATION
  Report Type: Spontaneous
  Country: US (occurrence: US)
  Receive Date: 20230124
  Receipt Date: 20230606
  Transmission Date: 20230721
  Serious: Yes (Other)
  Sender: FDA-Public Use
  Company Number: US-UPSHER-SMITH LABORATORIES, LLC-2023USL00036

PATIENT
  Sex: Male

DRUGS (18)
  1. BEXAROTENE [Suspect]
     Active Substance: BEXAROTENE
     Indication: Cutaneous T-cell lymphoma
     Dosage: UNK
     Route: 048
  2. BEXAROTENE [Suspect]
     Active Substance: BEXAROTENE
     Dosage: 300 MG (^4 CAPSULES^), 1X/DAY
     Route: 048
     Dates: end: 202009
  3. BEXAROTENE [Suspect]
     Active Substance: BEXAROTENE
     Dosage: 375 MG, 1X/DAY (INCREASE TO 5 PER DAY)
     Route: 048
     Dates: start: 202009, end: 202106
  4. BEXAROTENE [Suspect]
     Active Substance: BEXAROTENE
     Dosage: 300 MG, 1X/DAY
     Route: 048
     Dates: start: 202106
  5. BEXAROTENE [Suspect]
     Active Substance: BEXAROTENE
     Dosage: 375 MG, 1X/DAY (INCREASE TO 5 PER DAY)
     Route: 048
     Dates: end: 2023
  6. BEXAROTENE [Suspect]
     Active Substance: BEXAROTENE
     Dosage: 1 APPLICATION, 2X/DAY
     Route: 061
  7. LEVOTHYROXINE [Concomitant]
     Active Substance: LEVOTHYROXINE
     Dosage: 75 ?G, 1X/DAY BEFORE BREAKFAST
     Route: 048
  8. LEVOTHYROXINE [Concomitant]
     Active Substance: LEVOTHYROXINE
     Dosage: 112 ?G, 1X/DAY
     Route: 048
  9. LEVOTHYROXINE [Concomitant]
     Active Substance: LEVOTHYROXINE
     Dosage: 112 ?G, 1X/DAY
     Route: 048
  10. CLOBETASOL [Concomitant]
     Active Substance: CLOBETASOL
     Dosage: 1 APPLICATION (A THIN FILM) TO THE LESIONS, 2X/DAY (USED INTERMITTENTLY FOR ITCHING)
     Route: 061
  11. MUPIROCIN [Concomitant]
     Active Substance: MUPIROCIN
     Dosage: 1 APPLICATION, 3X/DAY
     Route: 061
  12. SILVER SULFADIAZINE [Concomitant]
     Active Substance: SILVER SULFADIAZINE
     Dosage: 1 APPLICATION, 2X/DAY
     Route: 061
  13. CHLORHEXIDINE [Concomitant]
     Active Substance: CHLORHEXIDINE
     Dosage: USE AS A BODY WASH 3X/WEEK
     Route: 061
  14. DOXYCYCLINE HYCLATE [Concomitant]
     Active Substance: DOXYCYCLINE HYCLATE
     Dosage: 100 MG, 2X/DAY WITH FOOD
  15. KETOCONAZOLE [Concomitant]
     Active Substance: KETOCONAZOLE
     Dosage: 1 APPLICATION, TOPICAL, DAILY
     Route: 061
  16. NYSTATIN [Concomitant]
     Active Substance: NYSTATIN
     Dosage: 5 ML, SWISH IN MOUTH AND SWALLOW, 4X/DAY
     Route: 048
  17. CEPHALEXIN [Concomitant]
     Active Substance: CEPHALEXIN
     Dosage: 250 MG, 3X/DAY (EVERY 8 HOURS) FOR 10 DAYS
     Route: 048
  18. LEVOTHYROXINE [Concomitant]
     Active Substance: LEVOTHYROXINE
     Dosage: 125 ?G, 1X/DAY BEFORE BREAKFAST
     Route: 048

REACTIONS (3)
  - Cutaneous T-cell lymphoma [Not Recovered/Not Resolved]
  - Hypertriglyceridaemia [Unknown]
  - Hypercholesterolaemia [Unknown]

NARRATIVE: CASE EVENT DATE: 20210101
